APPROVED DRUG PRODUCT: PREPIDIL
Active Ingredient: DINOPROSTONE
Strength: 0.5MG/3GM
Dosage Form/Route: GEL;ENDOCERVICAL
Application: N019617 | Product #001
Applicant: PFIZER INC
Approved: Dec 9, 1992 | RLD: Yes | RS: Yes | Type: RX